FAERS Safety Report 5035054-5 (Version None)
Quarter: 2006Q2

REPORT INFORMATION
  Report Type: 
  Country: None (occurrence: None)
  Receive Date: 20060622
  Receipt Date: 20060609
  Transmission Date: 20061013
  Serious: Yes (Hospitalization)
  Sender: FDA-Public Use
  Company Number: HQWYE060209JUN06

PATIENT
  Age: 57 Year
  Sex: Male

DRUGS (7)
  1. ANCARON (AMIODARONE, TABLET) [Suspect]
     Indication: ATRIAL FIBRILLATION
     Dosage: 200 MG 1X PER 1 DAY;   400 MG 1X PER 1 DAY
     Route: 048
     Dates: start: 20030101, end: 20050501
  2. ANCARON (AMIODARONE, TABLET) [Suspect]
     Indication: VENTRICULAR FIBRILLATION
     Dosage: 200 MG 1X PER 1 DAY;   400 MG 1X PER 1 DAY
     Route: 048
     Dates: start: 20030101, end: 20050501
  3. ANCARON (AMIODARONE, TABLET) [Suspect]
     Indication: VENTRICULAR TACHYCARDIA
     Dosage: 200 MG 1X PER 1 DAY;   400 MG 1X PER 1 DAY
     Route: 048
     Dates: start: 20030101, end: 20050501
  4. ANCARON (AMIODARONE, TABLET) [Suspect]
     Indication: ATRIAL FIBRILLATION
     Dosage: 200 MG 1X PER 1 DAY;   400 MG 1X PER 1 DAY
     Route: 048
     Dates: start: 20021101
  5. ANCARON (AMIODARONE, TABLET) [Suspect]
     Indication: VENTRICULAR FIBRILLATION
     Dosage: 200 MG 1X PER 1 DAY;   400 MG 1X PER 1 DAY
     Route: 048
     Dates: start: 20021101
  6. ANCARON (AMIODARONE, TABLET) [Suspect]
     Indication: VENTRICULAR TACHYCARDIA
     Dosage: 200 MG 1X PER 1 DAY;   400 MG 1X PER 1 DAY
     Route: 048
     Dates: start: 20021101
  7. DIGOXIN [Concomitant]

REACTIONS (9)
  - ATRIAL FIBRILLATION [None]
  - BRONCHOPNEUMONIA [None]
  - CARDIAC FAILURE [None]
  - DIARRHOEA [None]
  - DISEASE RECURRENCE [None]
  - HEPATIC FUNCTION ABNORMAL [None]
  - THYROIDITIS [None]
  - VENTRICULAR FIBRILLATION [None]
  - VENTRICULAR TACHYCARDIA [None]
